FAERS Safety Report 8353966-1 (Version None)
Quarter: 2012Q2

REPORT INFORMATION
  Report Type: 
  Country: None (occurrence: None)
  Receive Date: 20120509
  Receipt Date: 20120423
  Transmission Date: 20120825
  Serious: Yes (Hospitalization)
  Sender: FDA-Public Use
  Company Number: WAES 1204USA03716

PATIENT
  Age: 58 Year
  Sex: Female
  Weight: 65.7716 kg

DRUGS (6)
  1. ANASTROZOLE [Concomitant]
  2. POTASSIUM CHLORIDE [Concomitant]
  3. ALPRAZOLAM [Concomitant]
  4. VITAMINS (UNSPECIFIED) [Concomitant]
  5. ZOLINZA [Suspect]
     Indication: BREAST CANCER
     Dosage: 400 MG/DAILY/PO
     Route: 048
     Dates: start: 20120306, end: 20120319
  6. TRIAMTERENE AND HYDROCHLOROTHIAZIDE [Concomitant]

REACTIONS (6)
  - CHEST PAIN [None]
  - INFLUENZA [None]
  - PYREXIA [None]
  - DEHYDRATION [None]
  - SYNCOPE [None]
  - HYPOKALAEMIA [None]
